FAERS Safety Report 4409886-8 (Version None)
Quarter: 2004Q3

REPORT INFORMATION
  Report Type: 
  Country: None (occurrence: None)
  Receive Date: 20040722
  Receipt Date: 20040709
  Transmission Date: 20050211
  Serious: Yes (Other)
  Sender: FDA-Public Use
  Company Number: 2004046498

PATIENT
  Sex: 0

DRUGS (2)
  1. LIPITOR [Suspect]
     Indication: ILL-DEFINED DISORDER
     Dosage: ORAL
     Route: 048
  2. CELECOXIB (CELECOXIB) [Suspect]
     Indication: ILL-DEFINED DISORDER
     Dosage: ORAL
     Route: 048

REACTIONS (4)
  - CARDIAC DISORDER [None]
  - PAIN [None]
  - STENT PLACEMENT [None]
  - THERAPY NON-RESPONDER [None]
